FAERS Safety Report 15615392 (Version 1)
Quarter: 2018Q4

REPORT INFORMATION
  Report Type: Spontaneous
  Country: US (occurrence: US)
  Receive Date: 20181114
  Receipt Date: 20181114
  Transmission Date: 20190205
  Serious: No
  Sender: FDA-Public Use
  Company Number: US-ASTRAZENECA-2018SF36779

PATIENT
  Age: 70 Year
  Sex: Female

DRUGS (2)
  1. ARFORMOTEROL TARTRATE [Suspect]
     Active Substance: ARFORMOTEROL TARTRATE
     Route: 065
  2. BUDESONIDE. [Suspect]
     Active Substance: BUDESONIDE
     Dosage: UNKNOWN
     Route: 055

REACTIONS (5)
  - Tremor [Unknown]
  - Feeling abnormal [Unknown]
  - Nervousness [Unknown]
  - Chest discomfort [Unknown]
  - Heart rate increased [Unknown]
